FAERS Safety Report 17108586 (Version 1)
Quarter: 2019Q4

REPORT INFORMATION
  Report Type: Spontaneous
  Country: US (occurrence: US)
  Receive Date: 20191204
  Receipt Date: 20191204
  Transmission Date: 20200122
  Serious: No
  Sender: FDA-Public Use
  Company Number: US-CELGENEUS-USA-20191110881

PATIENT
  Age: 48 Year
  Sex: Female

DRUGS (2)
  1. OTEZLA [Suspect]
     Active Substance: APREMILAST
     Indication: PSORIASIS
     Dosage: 40 MILLIGRAM
     Route: 048
     Dates: start: 20191028
  2. OTEZLA [Suspect]
     Active Substance: APREMILAST
     Dosage: 1:00 PM AND 7:30 PM RIGHT AFTER A MEAL.
     Route: 048
     Dates: start: 201910

REACTIONS (3)
  - Headache [Not Recovered/Not Resolved]
  - Influenza like illness [Not Recovered/Not Resolved]
  - Nausea [Not Recovered/Not Resolved]

NARRATIVE: CASE EVENT DATE: 20191101
